FAERS Safety Report 9049286 (Version 1)
Quarter: 2013Q1

REPORT INFORMATION
  Report Type: Spontaneous
  Country: DE (occurrence: DE)
  Receive Date: 20130205
  Receipt Date: 20130205
  Transmission Date: 20140127
  Serious: Yes (Congenital Anomaly)
  Sender: FDA-Public Use
  Company Number: DE-TEVA-382092GER

PATIENT
  Sex: 0

DRUGS (4)
  1. PAROXETINE [Suspect]
     Route: 064
  2. LEPONEX [Suspect]
     Route: 064
  3. FOLSAEURE [Concomitant]
     Route: 064
  4. CYTOTEC [Concomitant]
     Route: 064

REACTIONS (1)
  - Renal aplasia [Not Recovered/Not Resolved]
